FAERS Safety Report 17704489 (Version 4)
Quarter: 2021Q1

REPORT INFORMATION
  Report Type: Spontaneous
  Country: US (occurrence: US)
  Receive Date: 20200424
  Receipt Date: 20210112
  Transmission Date: 20210419
  Serious: No
  Sender: FDA-Public Use
  Company Number: US-VERTEX PHARMACEUTICALS-2020-009194

PATIENT
  Sex: Female
  Weight: 63 kg

DRUGS (1)
  1. TRIKAFTA [Suspect]
     Active Substance: ELEXACAFTOR\IVACAFTOR\TEZACAFTOR
     Indication: CYSTIC FIBROSIS
     Dosage: 2 TABS (100MG ELEXACAFTOR/ 50MG TEZACAFTOR/ 75MG IVACAFTOR)AM AND 1 TAB (150MG IVACAFTOR) PM
     Route: 048
     Dates: start: 20200409

REACTIONS (5)
  - Rash [Recovered/Resolved]
  - Diarrhoea [Unknown]
  - Weight increased [Unknown]
  - Abdominal discomfort [Recovered/Resolved]
  - Cough [Unknown]

NARRATIVE: CASE EVENT DATE: 2020
